FAERS Safety Report 4709206-5 (Version None)
Quarter: 2005Q3

REPORT INFORMATION
  Report Type: 
  Country: None (occurrence: None)
  Receive Date: 20050708
  Receipt Date: 20050622
  Transmission Date: 20060218
  Serious: Yes (Hospitalization)
  Sender: FDA-Public Use
  Company Number: US-JNJFOC-20050606463

PATIENT
  Sex: Female
  Weight: 44.91 kg

DRUGS (4)
  1. DURAGESIC-100 [Suspect]
     Route: 062
     Dates: start: 20041001
  2. PERCOCET [Concomitant]
     Route: 049
  3. PERCOCET [Concomitant]
     Indication: PAIN
     Route: 049
  4. COUMADIN [Concomitant]
     Indication: DRUG USE FOR UNKNOWN INDICATION

REACTIONS (1)
  - HIP FRACTURE [None]
